FAERS Safety Report 9433121 (Version 2)
Quarter: 2013Q3

REPORT INFORMATION
  Report Type: Spontaneous
  Country: US (occurrence: US)
  Receive Date: 20130731
  Receipt Date: 20130805
  Transmission Date: 20140515
  Serious: Yes (Death)
  Sender: FDA-Public Use
  Company Number: US-BAXTER-2013BAX029954

PATIENT
  Sex: Male

DRUGS (5)
  1. DIANEAL LOW CALCIUM [Suspect]
     Indication: PERITONEAL DIALYSIS
     Route: 033
     Dates: start: 20110811, end: 20130707
  2. DIANEAL LOW CALCIUM [Suspect]
     Indication: PERITONEAL DIALYSIS
     Route: 033
     Dates: start: 20110811, end: 20130707
  3. DIANEAL LOW CALCIUM [Suspect]
     Indication: PERITONEAL DIALYSIS
     Route: 033
     Dates: start: 20110811, end: 20130707
  4. SENSIPAR [Suspect]
     Indication: BLOOD CALCIUM DECREASED
     Route: 065
  5. ONDANSETRON [Suspect]
     Indication: NAUSEA
     Route: 065

REACTIONS (3)
  - Intracranial aneurysm [Fatal]
  - Blood calcium decreased [Not Recovered/Not Resolved]
  - Nausea [Not Recovered/Not Resolved]
